FAERS Safety Report 18424173 (Version 1)
Quarter: 2020Q4

REPORT INFORMATION
  Report Type: Spontaneous
  Country: US (occurrence: US)
  Receive Date: 20201025
  Receipt Date: 20201025
  Transmission Date: 20210114
  Serious: Yes (Other)
  Sender: FDA-Public Use
  Company Number: US-PURDUE PHARMA-USA-2020-0151536

PATIENT
  Sex: Male

DRUGS (5)
  1. ADDERALL [Concomitant]
     Active Substance: AMPHETAMINE ASPARTATE\AMPHETAMINE SULFATE\DEXTROAMPHETAMINE SACCHARATE\DEXTROAMPHETAMINE SULFATE
     Indication: PRODUCT USED FOR UNKNOWN INDICATION
     Dosage: UNKNOWN
     Route: 065
  2. OXYCONTIN [Suspect]
     Active Substance: OXYCODONE HYDROCHLORIDE
     Indication: PRODUCT USED FOR UNKNOWN INDICATION
     Dosage: 80 MG, 4 DAY/WEEK
     Route: 048
     Dates: start: 200312, end: 20050104
  3. VICODIN [Suspect]
     Active Substance: ACETAMINOPHEN\HYDROCODONE BITARTRATE
     Indication: PRODUCT USED FOR UNKNOWN INDICATION
     Dosage: UNKNOWN
  4. OXYCONTIN [Suspect]
     Active Substance: OXYCODONE HYDROCHLORIDE
     Dosage: 160 MG, 4 DAY/WEEK
     Route: 048
     Dates: start: 200312, end: 20050104
  5. PROZAC [Concomitant]
     Active Substance: FLUOXETINE HYDROCHLORIDE
     Indication: DEPRESSION
     Dosage: 20 MG, DAILY
     Route: 048

REACTIONS (12)
  - Myalgia [Unknown]
  - Emotional distress [Unknown]
  - Withdrawal syndrome [Unknown]
  - Abdominal pain [Unknown]
  - Hyperhidrosis [Unknown]
  - Drug abuse [Unknown]
  - Tobacco user [Unknown]
  - Gastrooesophageal reflux disease [Unknown]
  - Drug tolerance [Unknown]
  - Drug dependence [Unknown]
  - Libido decreased [Unknown]
  - Chills [Unknown]

NARRATIVE: CASE EVENT DATE: 2004
